FAERS Safety Report 5012210-3 (Version None)
Quarter: 2006Q2

REPORT INFORMATION
  Report Type: 
  Country: None (occurrence: None)
  Receive Date: 20060406
  Receipt Date: 20051020
  Transmission Date: 20061013
  Serious: Yes (Other)
  Sender: FDA-Public Use
  Company Number: SUS1-2005-00784

PATIENT
  Age: 7 Year
  Sex: Male
  Weight: 28.2 kg

DRUGS (1)
  1. ADDERALL 10 [Suspect]
     Dates: start: 20040101, end: 20050501

REACTIONS (1)
  - CONVULSION [None]
